FAERS Safety Report 9381839 (Version 1)
Quarter: 2013Q3

REPORT INFORMATION
  Report Type: Spontaneous
  Country: US (occurrence: US)
  Receive Date: 20130703
  Receipt Date: 20130703
  Transmission Date: 20140515
  Serious: Yes (Hospitalization)
  Sender: FDA-Public Use
  Company Number: US-NOVEN-13US007163

PATIENT
  Age: 74 Year
  Sex: Female

DRUGS (1)
  1. FENTANYL [Suspect]
     Indication: PAIN
     Dosage: 50 UG/HR, Q 72 HOURS
     Route: 062
     Dates: start: 2011

REACTIONS (6)
  - Spinal laminectomy [Recovered/Resolved]
  - Spinal decompression [Recovered/Resolved]
  - Application site dermatitis [Not Recovered/Not Resolved]
  - Application site rash [Not Recovered/Not Resolved]
  - Application site vesicles [Not Recovered/Not Resolved]
  - Product quality issue [Not Recovered/Not Resolved]
